FAERS Safety Report 9433936 (Version 1)
Quarter: 2013Q3

REPORT INFORMATION
  Report Type: Spontaneous
  Country: IT (occurrence: IT)
  Receive Date: 20130801
  Receipt Date: 20130801
  Transmission Date: 20140515
  Serious: Yes (Hospitalization)
  Sender: FDA-Public Use
  Company Number: IT-ROCHE-1254215

PATIENT
  Sex: Male

DRUGS (2)
  1. LUCENTIS [Suspect]
     Indication: AGE-RELATED MACULAR DEGENERATION
     Route: 050
     Dates: start: 20130109
  2. LUCENTIS [Suspect]
     Route: 050
     Dates: start: 20130305

REACTIONS (4)
  - Abdominal pain [Recovered/Resolved]
  - Gastrointestinal hypomotility [Recovered/Resolved]
  - Vomiting [Recovered/Resolved]
  - Cardiac valve disease [Recovered/Resolved]
